FAERS Safety Report 21220465 (Version 2)
Quarter: 2022Q3

REPORT INFORMATION
  Report Type: Report from Study
  Country: FR (occurrence: FR)
  Receive Date: 20220817
  Receipt Date: 20220824
  Transmission Date: 20221027
  Serious: Yes (Death)
  Sender: FDA-Public Use
  Company Number: FR-NOVARTISPH-NVSC2022FR185400

PATIENT
  Sex: Male
  Weight: 74 kg

DRUGS (1)
  1. LUTETIUM LU-177 VIPIVOTIDE TETRAXETAN [Suspect]
     Active Substance: LUTETIUM LU-177 VIPIVOTIDE TETRAXETAN
     Indication: Hormone-refractory prostate cancer
     Dosage: UNK, ONCE
     Route: 042
     Dates: start: 20220325, end: 20220325

REACTIONS (5)
  - Death [Fatal]
  - Intestinal mass [Unknown]
  - Nutritional condition abnormal [Unknown]
  - Dyspepsia [Unknown]
  - Bone pain [Unknown]

NARRATIVE: CASE EVENT DATE: 20220328
